FAERS Safety Report 17374980 (Version 2)
Quarter: 2020Q1

REPORT INFORMATION
  Report Type: Spontaneous
  Country: CO (occurrence: CO)
  Receive Date: 20200206
  Receipt Date: 20200227
  Transmission Date: 20200409
  Serious: Yes (Hospitalization, Disabling, Other)
  Sender: FDA-Public Use
  Company Number: CO-UNITED THERAPEUTICS-UNT-2019-015038

PATIENT

DRUGS (9)
  1. RIOCIGUAT. [Concomitant]
     Active Substance: RIOCIGUAT
     Indication: PULMONARY HYPERTENSION
     Dosage: 2.5 MG, Q8H
     Route: 048
     Dates: start: 201707
  2. REMODULIN [Suspect]
     Active Substance: TREPROSTINIL
     Dosage: 0.05 ?G/KG, CONTINUING
     Route: 058
  3. FUROSEMIDA [Concomitant]
     Active Substance: FUROSEMIDE
     Indication: CARDIAC FAILURE
     Dosage: 40 MG, Q12H
     Route: 048
     Dates: start: 201812
  4. LANITOP [Concomitant]
     Active Substance: METILDIGOXIN
     Indication: CARDIAC DISORDER
     Dosage: 1 MG, QD
     Route: 048
     Dates: start: 201812
  5. REMODULIN [Suspect]
     Active Substance: TREPROSTINIL
     Indication: PULMONARY HYPERTENSION
     Dosage: 0.036 ?G/KG, CONTINUING
     Route: 058
     Dates: start: 20190330
  6. LANITOP [Concomitant]
     Active Substance: METILDIGOXIN
     Dosage: 0.1 MG, QD
     Route: 048
  7. SPIRONOLACTONE. [Concomitant]
     Active Substance: SPIRONOLACTONE
     Indication: CARDIAC FAILURE
     Dosage: 50 MG, Q12H
     Route: 048
     Dates: start: 201811
  8. MACITENTAN [Concomitant]
     Active Substance: MACITENTAN
     Indication: PULMONARY HYPERTENSION
     Dosage: 10 MG, QD
     Route: 048
     Dates: start: 201801
  9. DABIGATRAN [Concomitant]
     Active Substance: DABIGATRAN
     Indication: RENAL FAILURE
     Dosage: 110 MG, QD
     Route: 048
     Dates: start: 201902

REACTIONS (5)
  - Device dislocation [Unknown]
  - Catheter site erythema [Unknown]
  - Cardiac failure [Not Recovered/Not Resolved]
  - Disease progression [Not Recovered/Not Resolved]
  - Pleural effusion [Recovered/Resolved]

NARRATIVE: CASE EVENT DATE: 20190904
